FAERS Safety Report 14070939 (Version 2)
Quarter: 2017Q4

REPORT INFORMATION
  Report Type: Report from Study
  Country: FR (occurrence: FR)
  Receive Date: 20171011
  Receipt Date: 20171024
  Transmission Date: 20180321
  Serious: Yes (Life-Threatening)
  Sender: FDA-Public Use
  Company Number: FR-ROCHE-2006332

PATIENT
  Age: 5 Year
  Sex: Male

DRUGS (8)
  1. RITUXIMAB. [Suspect]
     Active Substance: RITUXIMAB
     Indication: BURKITT^S LYMPHOMA
     Dosage: FOR A CUMULATIVE DOSE BEFORE EVENT ONSET OF 580 MG,
     Route: 042
     Dates: start: 20170309, end: 20170311
  2. VINCRISTINE [Suspect]
     Active Substance: VINCRISTINE
     Indication: BURKITT^S LYMPHOMA
     Dosage: FOR A CUMULATIVE DOSE BEFORE EVENT ONSET OF 1.5 MG
     Route: 042
     Dates: start: 20170311, end: 20170311
  3. ENDOXAN [Suspect]
     Active Substance: CYCLOPHOSPHAMIDE
     Indication: BURKITT^S LYMPHOMA
     Dosage: FOR A CUMULATIVE DOSE BEFORE EVENT ONSET OF 576 MG
     Route: 042
     Dates: start: 20170312, end: 20170312
  4. DOXORUBICINE [Suspect]
     Active Substance: DOXORUBICIN
     Indication: BURKITT^S LYMPHOMA
     Dosage: FOR A CUMULATIVE DOSE BEFORE EVENT ONSET OF 46 MG
     Route: 042
     Dates: start: 20170312
  5. RITUXIMAB. [Suspect]
     Active Substance: RITUXIMAB
     Dosage: FOR A CUMULATIVE DOSE BEFORE EVENT ONSET OF 580 MG,
     Route: 042
     Dates: start: 20170311
  6. METHOTREXATE. [Suspect]
     Active Substance: METHOTREXATE
     Indication: BURKITT^S LYMPHOMA
     Dosage: FOR A CUMULATIVE DOSE BEFORE EVENT ONSET OF 2300 MG
     Route: 042
     Dates: start: 20170311
  7. ENDOXAN [Suspect]
     Active Substance: CYCLOPHOSPHAMIDE
     Dosage: FOR A CUMULATIVE DOSE BEFORE EVENT ONSET OF 576 MG
     Route: 042
     Dates: end: 20170314
  8. PREDNISONE. [Suspect]
     Active Substance: PREDNISONE
     Indication: BURKITT^S LYMPHOMA
     Route: 042
     Dates: start: 20170311, end: 20170318

REACTIONS (2)
  - Mucosal inflammation [Recovered/Resolved]
  - Pyrexia [Unknown]

NARRATIVE: CASE EVENT DATE: 20170316
